FAERS Safety Report 8823495 (Version 2)
Quarter: 2012Q4

REPORT INFORMATION
  Report Type: 
  Country: US (occurrence: US)
  Receive Date: 20121003
  Receipt Date: 20121029
  Transmission Date: 20130627
  Serious: Yes (Hospitalization)
  Sender: FDA-Public Use
  Company Number: US-B.I. PHARMACEUTICALS,INC./RIDGEFIELD-2012-BP-23554BP

PATIENT
  Age: 73 Year
  Sex: Male
  Weight: 79.83 kg

DRUGS (10)
  1. PRADAXA [Suspect]
     Indication: ATRIAL FIBRILLATION
     Dosage: 300 mg
     Route: 048
     Dates: start: 20110422, end: 20120926
  2. LIPITOR [Concomitant]
     Indication: HYPERLIPIDAEMIA
     Dosage: 80 mg
  3. DIGOXIN [Concomitant]
     Indication: ATRIAL FIBRILLATION
     Dosage: 0.125 mg
  4. CRESTOR [Concomitant]
  5. PREDNISONE [Concomitant]
  6. MOTRIN [Concomitant]
  7. AMLODIPINE [Concomitant]
  8. GLIPIZIDE [Concomitant]
  9. LEVOTHYROXINE [Concomitant]
  10. BISOPROLOL [Concomitant]

REACTIONS (3)
  - Pneumonia [Recovered/Resolved]
  - Myasthenia gravis [Recovered/Resolved]
  - Gastrointestinal haemorrhage [Recovered/Resolved]
